FAERS Safety Report 11818299 (Version 4)
Quarter: 2017Q2

REPORT INFORMATION
  Report Type: Spontaneous
  Country: US (occurrence: US)
  Receive Date: 20151210
  Receipt Date: 20170607
  Transmission Date: 20170829
  Serious: No
  Sender: FDA-Public Use
  Company Number: US-JNJFOC-20150810694

PATIENT
  Age: 25 Year
  Sex: Male

DRUGS (3)
  1. RISPERDAL [Suspect]
     Active Substance: RISPERIDONE
     Indication: MAJOR DEPRESSION
     Route: 048
     Dates: start: 20060907, end: 20060927
  2. INVEGA [Suspect]
     Active Substance: PALIPERIDONE
     Indication: SCHIZOPHRENIA
     Route: 048
     Dates: start: 201001
  3. INVEGA [Suspect]
     Active Substance: PALIPERIDONE
     Indication: SCHIZOPHRENIA
     Dosage: VARIED DOSES OF 3 MG AND 6 MG
     Route: 048

REACTIONS (5)
  - Off label use [Unknown]
  - Gynaecomastia [Unknown]
  - Abnormal weight gain [Unknown]
  - Product use in unapproved indication [Unknown]
  - Galactorrhoea [Unknown]

NARRATIVE: CASE EVENT DATE: 2006
